FAERS Safety Report 9921755 (Version 1)
Quarter: 2014Q1

REPORT INFORMATION
  Report Type: Spontaneous
  Country: US (occurrence: None)
  Receive Date: 20140221
  Receipt Date: 20140221
  Transmission Date: 20141002
  Serious: Yes (Death, Hospitalization)
  Sender: FDA-Public Use
  Company Number: None

PATIENT
  Sex: Male

DRUGS (1)
  1. ANDROGEL [Suspect]
     Dosage: 1.62, TWICE DAILY

REACTIONS (4)
  - Embolism [None]
  - Mesenteric vascular insufficiency [None]
  - Intestinal perforation [None]
  - Multi-organ disorder [None]
